FAERS Safety Report 6211552-3 (Version None)
Quarter: 2009Q2

REPORT INFORMATION
  Report Type: 
  Country: None (occurrence: None)
  Receive Date: 20090528
  Receipt Date: 20090515
  Transmission Date: 20091009
  Serious: Yes (Death)
  Sender: FDA-Public Use
  Company Number: 276223

PATIENT
  Age: 26 Year

DRUGS (2)
  1. DEFEROXAMINE MESYLATE [Suspect]
     Indication: THALASSAEMIA BETA
     Dosage: 40-45 MG/KG/DAY USUALLY OVER 8-12 SUBCUTANEOUS
     Route: 058
  2. DEFERIPRONE [Concomitant]

REACTIONS (1)
  - ARRHYTHMIA [None]
